FAERS Safety Report 4463288-7 (Version None)
Quarter: 2004Q3

REPORT INFORMATION
  Report Type: 
  Country: None (occurrence: None)
  Receive Date: 20040930
  Receipt Date: 20040706
  Transmission Date: 20050211
  Serious: No
  Sender: FDA-Public Use
  Company Number: US-BRISTOL-MYERS SQUIBB COMPANY-12633442

PATIENT

DRUGS (3)
  1. REYATAZ [Suspect]
     Dates: start: 20030101
  2. NORVIR [Concomitant]
  3. VIREAD [Concomitant]

REACTIONS (1)
  - POLYCYTHAEMIA [None]
